FAERS Safety Report 7980361-7 (Version None)
Quarter: 2011Q4

REPORT INFORMATION
  Report Type: 
  Country: None (occurrence: None)
  Receive Date: 20111214
  Receipt Date: 20111207
  Transmission Date: 20120403
  Serious: Yes (Other)
  Sender: FDA-Public Use
  Company Number: US-JNJFOC-20111204604

PATIENT

DRUGS (2)
  1. XARELTO [Suspect]
     Indication: THROMBOSIS PROPHYLAXIS
     Route: 065
  2. HEPARIN [Suspect]
     Indication: ILL-DEFINED DISORDER

REACTIONS (1)
  - HEPARIN-INDUCED THROMBOCYTOPENIA [None]
